FAERS Safety Report 21329127 (Version 1)
Quarter: 2022Q3

REPORT INFORMATION
  Report Type: Spontaneous
  Country: US (occurrence: None)
  Receive Date: 20220912
  Receipt Date: 20220912
  Transmission Date: 20221027
  Serious: Yes (unspecified)
  Sender: FDA-Public Use
  Company Number: None

PATIENT
  Age: 59 Year
  Sex: Female
  Weight: 83.6 kg

DRUGS (1)
  1. HERCEPTIN [Suspect]
     Active Substance: TRASTUZUMAB
     Indication: Breast cancer
     Dosage: FREQUENCY : WEEKLY;?
     Route: 041
     Dates: start: 20220822

REACTIONS (3)
  - Infusion related reaction [None]
  - Flushing [None]
  - Chest discomfort [None]

NARRATIVE: CASE EVENT DATE: 20220906
